FAERS Safety Report 10307486 (Version 3)
Quarter: 2014Q4

REPORT INFORMATION
  Report Type: Spontaneous
  Country: JP (occurrence: JP)
  Receive Date: 20140716
  Receipt Date: 20141028
  Transmission Date: 20150528
  Serious: Yes (Death, Other)
  Sender: FDA-Public Use
  Company Number: PHHY2014JP086484

PATIENT
  Age: 74 Year
  Sex: Male

DRUGS (3)
  1. ZOLEDRONATE [Suspect]
     Active Substance: ZOLEDRONIC ACID
     Indication: PROSTATE CANCER
  2. ZOLEDRONATE [Suspect]
     Active Substance: ZOLEDRONIC ACID
     Indication: PROSTATE CANCER METASTATIC
  3. ZOLEDRONATE [Suspect]
     Active Substance: ZOLEDRONIC ACID
     Indication: METASTASES TO BONE
     Dosage: 4 MG, UNK
     Route: 041
     Dates: start: 20090630, end: 20091216

REACTIONS (15)
  - Osteomyelitis [Recovering/Resolving]
  - Loose tooth [Recovering/Resolving]
  - Bone lesion [Recovering/Resolving]
  - Pain in jaw [Recovered/Resolved]
  - Osteonecrosis [Recovering/Resolving]
  - Bone pain [Recovering/Resolving]
  - Malignant neoplasm progression [Fatal]
  - Swelling [Unknown]
  - Erythema [Recovering/Resolving]
  - Soft tissue infection [Recovering/Resolving]
  - Periodontitis [Recovering/Resolving]
  - Prostate cancer [Fatal]
  - Exposed bone in jaw [Recovering/Resolving]
  - Gingivitis [Recovering/Resolving]
  - Osteonecrosis of jaw [Recovering/Resolving]

NARRATIVE: CASE EVENT DATE: 20100430
